FAERS Safety Report 26057630 (Version 1)
Quarter: 2025Q4

REPORT INFORMATION
  Report Type: Spontaneous
  Country: US (occurrence: None)
  Receive Date: 20251118
  Receipt Date: 20251118
  Transmission Date: 20260118
  Serious: No
  Sender: UCB
  Company Number: US-UCBSA-2025035877

PATIENT

DRUGS (3)
  1. VIMPAT [Suspect]
     Active Substance: LACOSAMIDE
     Indication: Seizure
     Dosage: 150 MILLIGRAM, 2X/DAY (BID) (9 AM AND 9 PM)
  2. SYNTHROID [Concomitant]
     Active Substance: LEVOTHYROXINE SODIUM
     Indication: Thyroid disorder
     Dosage: 3.75 MG OF IT ONCE A DAY (1.5 PILLS OF THE LOWEST AVAILABLE DOSE).
  3. VITAMIN D3 [Concomitant]
     Active Substance: CHOLECALCIFEROL
     Indication: Prophylaxis

REACTIONS (12)
  - Amnesia [Recovered/Resolved]
  - Insomnia [Recovered/Resolved]
  - Flatulence [Not Recovered/Not Resolved]
  - Cognitive disorder [Recovered/Resolved]
  - Photosensitivity reaction [Unknown]
  - Dyspnoea [Unknown]
  - Pain in extremity [Unknown]
  - Fall [Unknown]
  - Injury [Unknown]
  - Scratch [Unknown]
  - Contusion [Unknown]
  - Product dose omission in error [Unknown]
